FAERS Safety Report 24089450 (Version 1)
Quarter: 2024Q3

REPORT INFORMATION
  Report Type: Spontaneous
  Country: FR (occurrence: FR)
  Receive Date: 20240715
  Receipt Date: 20240715
  Transmission Date: 20241016
  Serious: No
  Sender: PIERRE FABRE MEDICAMENT
  Company Number: FR-PFM-2021-08757

PATIENT
  Sex: Female

DRUGS (1)
  1. PROPRANOLOL HYDROCHLORIDE [Suspect]
     Active Substance: PROPRANOLOL HYDROCHLORIDE
     Indication: Anorectal haemangioma
     Dosage: 13 MG, BID (2/DAY)
     Route: 048
     Dates: start: 2017

REACTIONS (1)
  - Disease recurrence [Unknown]
